FAERS Safety Report 5772850-0 (Version None)
Quarter: 2008Q2

REPORT INFORMATION
  Report Type: 
  Country: None (occurrence: None)
  Receive Date: 20080613
  Receipt Date: 20080526
  Transmission Date: 20081010
  Serious: Yes (Other)
  Sender: FDA-Public Use
  Company Number: FR-PFIZER INC-2008037592

PATIENT
  Sex: Female

DRUGS (4)
  1. CHANTIX [Suspect]
     Indication: SMOKING CESSATION THERAPY
     Route: 048
     Dates: start: 20080124, end: 20080313
  2. ALCOHOL [Suspect]
  3. ESTRADIOL HEMIHYDRATE [Concomitant]
  4. GESTODENE [Concomitant]

REACTIONS (2)
  - HOMICIDAL IDEATION [None]
  - SUICIDE ATTEMPT [None]
